FAERS Safety Report 13256444 (Version 2)
Quarter: 2017Q1

REPORT INFORMATION
  Report Type: Spontaneous
  Country: CH (occurrence: CH)
  Receive Date: 20170221
  Receipt Date: 20170302
  Transmission Date: 20170428
  Serious: Yes (Death)
  Sender: FDA-Public Use
  Company Number: CH-PFIZER INC-2017071768

PATIENT
  Age: 76 Year
  Sex: Female
  Weight: 81 kg

DRUGS (6)
  1. EMEND [Suspect]
     Active Substance: APREPITANT
     Dosage: 80 MG, DAILY
     Dates: start: 20170120, end: 20170121
  2. EMEND [Suspect]
     Active Substance: APREPITANT
     Indication: NAUSEA
     Dosage: 125 MG, SINGLE
     Route: 048
     Dates: start: 20170119, end: 20170119
  3. FORTECORTIN /00016001/ [Suspect]
     Active Substance: DEXAMETHASONE
     Indication: NAUSEA
     Dosage: 8 MG, 1X/DAY
     Route: 048
     Dates: start: 20170119, end: 20170121
  4. ZOFRAN [Concomitant]
     Active Substance: ONDANSETRON HYDROCHLORIDE
     Dosage: 8 MG, 1X/DAY
     Route: 048
     Dates: start: 20170119, end: 20170121
  5. ENDOXAN /00021101/ [Suspect]
     Active Substance: CYCLOPHOSPHAMIDE
     Indication: BREAST CANCER
     Dosage: 1100 MG, EVERY 3 WEEKS
     Route: 042
     Dates: start: 20170119, end: 20170119
  6. ADRIBLASTIN [Suspect]
     Active Substance: DOXORUBICIN HYDROCHLORIDE
     Indication: BREAST CANCER
     Dosage: 110 MG, EVERY 3 WEEKS
     Route: 042
     Dates: start: 20170119, end: 20170119

REACTIONS (3)
  - Pulmonary embolism [Fatal]
  - Febrile neutropenia [Fatal]
  - Splenic infarction [Fatal]

NARRATIVE: CASE EVENT DATE: 2017
